FAERS Safety Report 20077250 (Version 1)
Quarter: 2021Q4

REPORT INFORMATION
  Report Type: Spontaneous
  Country: GB (occurrence: None)
  Receive Date: 20211116
  Receipt Date: 20211116
  Transmission Date: 20220303
  Serious: Yes (Other)
  Sender: FDA-Public Use
  Company Number: 2021A803021

PATIENT
  Sex: Female

DRUGS (13)
  1. DAPAGLIFLOZIN [Suspect]
     Active Substance: DAPAGLIFLOZIN
     Dosage: 10.0MG UNKNOWN
     Route: 065
  2. ACIDEX [Concomitant]
     Dosage: 10-20ML AFTER MEALS AND AT BEDTIME
     Route: 065
  3. ESOMEPRAZOLE [Concomitant]
     Active Substance: ESOMEPRAZOLE
     Route: 065
  4. PHENELZINE [Concomitant]
     Active Substance: PHENELZINE
     Route: 065
  5. METFORMIN [Concomitant]
     Active Substance: METFORMIN HYDROCHLORIDE
     Route: 065
  6. VITAMIN D [Concomitant]
     Active Substance: VITAMIN D NOS
     Route: 065
  7. VITAMIN C [Concomitant]
     Active Substance: ASCORBIC ACID
     Route: 065
  8. MIRABEGRON [Concomitant]
     Active Substance: MIRABEGRON
     Indication: Bladder irritation
     Route: 065
  9. TROSPIUM CHLORIDE [Concomitant]
     Active Substance: TROSPIUM CHLORIDE
     Indication: Bladder irritation
     Route: 065
  10. LEVOTHYROXINE SODIUM [Concomitant]
     Active Substance: LEVOTHYROXINE SODIUM
     Route: 065
  11. LEVOTHYROXINE SODIUM [Concomitant]
     Active Substance: LEVOTHYROXINE SODIUM
     Route: 065
  12. MINOXIDIL [Concomitant]
     Active Substance: MINOXIDIL
     Dosage: DAILY
     Route: 065
  13. FERROUS BISGLYCINATE [Concomitant]
     Active Substance: FERROUS BISGLYCINATE
     Route: 065

REACTIONS (3)
  - Depression [Unknown]
  - Irritability [Unknown]
  - Headache [Unknown]
